FAERS Safety Report 11987996 (Version 1)
Quarter: 2016Q1

REPORT INFORMATION
  Report Type: Spontaneous
  Country: US (occurrence: None)
  Receive Date: 20160201
  Receipt Date: 20160201
  Transmission Date: 20160526
  Serious: Yes (Other)
  Sender: FDA-Public Use
  Company Number: None

PATIENT
  Age: 57 Year
  Sex: Female
  Weight: 102.06 kg

DRUGS (24)
  1. MAGNESIUM [Concomitant]
     Active Substance: MAGNESIUM
  2. ESTROVEN [Concomitant]
     Active Substance: DIETARY SUPPLEMENT
  3. CPAP [Concomitant]
     Active Substance: DEVICE
  4. SYMBACORT [Concomitant]
  5. ALBUTEROL. [Concomitant]
     Active Substance: ALBUTEROL
  6. EFFEXOR [Concomitant]
     Active Substance: VENLAFAXINE HYDROCHLORIDE
  7. CALCIUM CITRATE [Concomitant]
     Active Substance: CALCIUM CITRATE
  8. VITAMIN B COMPLEX [Concomitant]
     Active Substance: CYANOCOBALAMIN\DEXPANTHENOL\NIACINAMIDE\PYRIDOXINE HYDROCHLORIDE\RIBOFLAVIN 5^-PHOSPHATE SODIUM\THIAMINE HYDROCHLORIDE\VITAMIN B COMPLEX
  9. POTASSIUM [Concomitant]
     Active Substance: POTASSIUM
  10. CRANBERRY. [Concomitant]
     Active Substance: CRANBERRY
  11. IRON [Concomitant]
     Active Substance: IRON
  12. NEXIUM [Concomitant]
     Active Substance: ESOMEPRAZOLE MAGNESIUM
  13. AMBIEN [Concomitant]
     Active Substance: ZOLPIDEM TARTRATE
  14. CLONAZEPAM. [Concomitant]
     Active Substance: CLONAZEPAM
  15. TRAZODONE [Concomitant]
     Active Substance: TRAZODONE HYDROCHLORIDE
  16. ACYCLOVIR. [Concomitant]
     Active Substance: ACYCLOVIR
  17. TURMERIC [Concomitant]
     Active Substance: TURMERIC
  18. MENOQUIL [Concomitant]
  19. FEMMINESENCE [Concomitant]
  20. PERMETHRIN CREAM 5% PERRIGO [Suspect]
     Active Substance: PERMETHRIN
     Indication: ACARODERMATITIS
     Dosage: 1X ONCE APPLIED TO A SURFACE, USUALLY THE SKIN
     Route: 061
     Dates: start: 20160130, end: 20160130
  21. ADULT MULTI-VITAMIN [Concomitant]
  22. ASTELIN [Concomitant]
     Active Substance: AZELASTINE HYDROCHLORIDE
  23. VITAMIN D [Concomitant]
     Active Substance: CHOLECALCIFEROL
  24. FLAXSEED PILLS [Concomitant]

REACTIONS (3)
  - Hypersensitivity [None]
  - Pruritus [None]
  - Erythema [None]

NARRATIVE: CASE EVENT DATE: 20160125
